FAERS Safety Report 25700410 (Version 1)
Quarter: 2025Q3

REPORT INFORMATION
  Report Type: Report from Study
  Country: EU (occurrence: EU)
  Receive Date: 20250819
  Receipt Date: 20250819
  Transmission Date: 20251020
  Serious: Yes (Hospitalization, Other)
  Sender: NOVARTIS
  Company Number: EU-002147023-NVSC2025BG114988

PATIENT
  Age: 69 Year
  Sex: Female
  Weight: 65 kg

DRUGS (3)
  1. LEQVIO [Suspect]
     Active Substance: INCLISIRAN SODIUM
     Indication: Blood cholesterol increased
     Route: 058
     Dates: start: 20250620, end: 20250620
  2. JARDIANCE [Concomitant]
     Active Substance: EMPAGLIFLOZIN
     Indication: Diabetes mellitus
     Route: 065
  3. Valmox [Concomitant]
     Indication: Hypertension
     Route: 065

REACTIONS (8)
  - Breast swelling [Recovering/Resolving]
  - Breast pain [Recovering/Resolving]
  - Pseudomonas infection [Recovering/Resolving]
  - Staphylococcal infection [Recovering/Resolving]
  - Headache [Recovered/Resolved]
  - Muscular weakness [Recovered/Resolved]
  - Impaired healing [Unknown]
  - Fall [Unknown]

NARRATIVE: CASE EVENT DATE: 20250620
